FAERS Safety Report 25030101 (Version 1)
Quarter: 2025Q1

REPORT INFORMATION
  Report Type: Spontaneous
  Country: IT (occurrence: IT)
  Receive Date: 20250303
  Receipt Date: 20250303
  Transmission Date: 20250409
  Serious: Yes (Death, Other)
  Sender: TEVA
  Company Number: IT-TEVA-VS-3304298

PATIENT
  Age: 43 Year
  Sex: Male

DRUGS (4)
  1. CARBOPLATIN [Suspect]
     Active Substance: CARBOPLATIN
     Indication: Neuroendocrine carcinoma
     Dosage: AREA UNDER CURVE 5 ON DAY 1; EVERY 21 DAYS
     Route: 065
     Dates: start: 202003, end: 2020
  2. ATEZOLIZUMAB [Suspect]
     Active Substance: ATEZOLIZUMAB
     Indication: Neuroendocrine carcinoma
     Dosage: 1200MG ON DAY?1; EVERY 21 DAYS
     Route: 065
     Dates: start: 202003, end: 2020
  3. BEVACIZUMAB [Suspect]
     Active Substance: BEVACIZUMAB
     Indication: Neuroendocrine carcinoma
     Dosage: 15?MG/KG ON DAY?1; EVERY 21 DAYS
     Route: 065
     Dates: start: 202003, end: 2020
  4. PACLITAXEL [Suspect]
     Active Substance: PACLITAXEL
     Indication: Neuroendocrine carcinoma
     Dosage: 175?MG/MQ ON DAY?1; EVERY 21 DAYS
     Route: 065
     Dates: start: 202003, end: 2020

REACTIONS (1)
  - Drug ineffective [Fatal]

NARRATIVE: CASE EVENT DATE: 20200101
